FAERS Safety Report 5670840-X (Version None)
Quarter: 2008Q1

REPORT INFORMATION
  Report Type: 
  Country: None (occurrence: None)
  Receive Date: 20080313
  Receipt Date: 20080303
  Transmission Date: 20080703
  Serious: Yes (Other)
  Sender: FDA-Public Use
  Company Number: GXKR2008US02236

PATIENT
  Age: 16 Year
  Sex: Male

DRUGS (4)
  1. BUPROPION HCL [Suspect]
     Indication: DEPRESSION
     Dosage: 100 MG, BID, ORAL
     Route: 048
  2. ROPIVACAINE(ROPIVACAINE) [Suspect]
     Indication: LOCAL ANAESTHESIA
     Dosage: 4 MG/KG, INJECTION NOS
  3. SALINE (SODIUM CHLORIDE) [Concomitant]
  4. EPINEPHRINE [Concomitant]

REACTIONS (3)
  - DRUG INTERACTION [None]
  - GRAND MAL CONVULSION [None]
  - MENTAL STATUS CHANGES [None]
